FAERS Safety Report 19306657 (Version 1)
Quarter: 2021Q2

REPORT INFORMATION
  Report Type: Spontaneous
  Country: TW (occurrence: TW)
  Receive Date: 20210526
  Receipt Date: 20210526
  Transmission Date: 20210717
  Serious: Yes (Hospitalization, Other)
  Sender: FDA-Public Use
  Company Number: TW-009507513-2105TWN005320

PATIENT
  Age: 75 Year
  Sex: Female

DRUGS (2)
  1. PEMBROLIZUMAB. [Suspect]
     Active Substance: PEMBROLIZUMAB
     Indication: TRANSITIONAL CELL CANCER OF THE RENAL PELVIS AND URETER
     Dosage: 200 MG, ONCE EVERY THREE WEEKS; FIRST DOSE
     Dates: start: 20190924, end: 20190924
  2. PEMBROLIZUMAB. [Suspect]
     Active Substance: PEMBROLIZUMAB
     Dosage: 200 MG, ONCE EVERY THREE WEEKS
     Dates: start: 20200227

REACTIONS (3)
  - Myasthenic syndrome [Recovered/Resolved]
  - Drug-induced liver injury [Recovered/Resolved]
  - Orbital myositis [Recovered/Resolved]

NARRATIVE: CASE EVENT DATE: 20191011
